FAERS Safety Report 24456113 (Version 2)
Quarter: 2024Q4

REPORT INFORMATION
  Report Type: Report from Study
  Country: CA (occurrence: CA)
  Receive Date: 20241017
  Receipt Date: 20241018
  Transmission Date: 20250114
  Serious: No
  Sender: ROCHE
  Company Number: CA-ROCHE-3496564

PATIENT
  Sex: Female

DRUGS (4)
  1. RITUXAN [Suspect]
     Active Substance: RITUXIMAB
     Indication: Rheumatoid arthritis
     Dosage: NO PIRS ARE AVAILABLE
     Route: 042
     Dates: start: 20180404, end: 20211012
  2. ARAVA [Concomitant]
     Active Substance: LEFLUNOMIDE
  3. METHOTREXATE [Concomitant]
     Active Substance: METHOTREXATE
  4. XELJANZ [Concomitant]
     Active Substance: TOFACITINIB CITRATE

REACTIONS (1)
  - Joint swelling [Unknown]
